FAERS Safety Report 10541978 (Version 2)
Quarter: 2014Q4

REPORT INFORMATION
  Report Type: Spontaneous
  Country: US (occurrence: US)
  Receive Date: 20141024
  Receipt Date: 20141201
  Transmission Date: 20150529
  Serious: Yes (Other)
  Sender: FDA-Public Use
  Company Number: US-BAYER-2014-153788

PATIENT
  Age: 32 Year
  Sex: Female

DRUGS (1)
  1. MIRENA [Suspect]
     Active Substance: LEVONORGESTREL
     Indication: CONTRACEPTION
     Dosage: 20 MCG/24HR, CONT
     Route: 015
     Dates: start: 20141009, end: 20141009

REACTIONS (7)
  - Post procedural haemorrhage [None]
  - Peripheral venous disease [Recovered/Resolved]
  - Uterine haemorrhage [Recovered/Resolved]
  - Heart rate increased [None]
  - Blood pressure decreased [None]
  - Hypovolaemic shock [None]
  - Device expulsion [Recovered/Resolved]

NARRATIVE: CASE EVENT DATE: 20141009
